FAERS Safety Report 5287665-X (Version None)
Quarter: 2007Q2

REPORT INFORMATION
  Report Type: 
  Country: None (occurrence: None)
  Receive Date: 20070405
  Receipt Date: 20070327
  Transmission Date: 20071010
  Serious: Yes (Life-Threatening, Other)
  Sender: FDA-Public Use
  Company Number: HQWYE216109AUG06

PATIENT
  Sex: Male
  Weight: 55 kg

DRUGS (28)
  1. MYLOTARG [Suspect]
     Indication: ACUTE LEUKAEMIA
     Route: 041
     Dates: start: 20060516, end: 20060516
  2. ACYCLOVIR [Suspect]
     Indication: PROPHYLAXIS
     Route: 041
     Dates: start: 20060514, end: 20060527
  3. ACYCLOVIR [Suspect]
     Route: 041
     Dates: start: 20060604
  4. MEROPEN [Suspect]
     Indication: SEPSIS
     Dosage: UNKNOWN DAILY DOSE
     Route: 041
     Dates: start: 20060514, end: 20060525
  5. VFEND [Suspect]
     Indication: SEPSIS
     Route: 041
     Dates: start: 20060516
  6. TARGOCID [Suspect]
     Indication: SEPSIS
     Route: 041
     Dates: start: 20060519
  7. CIPROFLOXACIN [Concomitant]
     Indication: SEPSIS
     Route: 041
     Dates: start: 20060528, end: 20060605
  8. GANCICLOVIR [Concomitant]
     Indication: CYTOMEGALOVIRUS VIRAEMIA
     Route: 041
     Dates: start: 20060528, end: 20060603
  9. URSO [Concomitant]
     Indication: CHOLESTASIS
     Route: 048
     Dates: start: 20060514
  10. BLOPRESS [Concomitant]
     Indication: HYPERTENSION
     Route: 048
     Dates: start: 20060514, end: 20060525
  11. BLOPRESS [Concomitant]
     Route: 048
     Dates: start: 20060611
  12. OMEPRAL [Concomitant]
     Indication: PROPHYLAXIS
     Route: 048
     Dates: start: 20060518
  13. MORPHINE [Concomitant]
     Indication: CANCER PAIN
     Dosage: UNKNOWN DAILY DOSE
     Route: 041
     Dates: start: 20060524, end: 20060606
  14. GASTER [Suspect]
     Indication: PROPHYLAXIS
     Route: 048
     Dates: start: 20060514, end: 20060517
  15. BIOFERMIN R [Concomitant]
     Indication: ENTEROCOLITIS
     Route: 048
     Dates: start: 20060522, end: 20060525
  16. ADSORBIN [Concomitant]
     Indication: ENTEROCOLITIS
     Route: 048
     Dates: start: 20060525, end: 20060526
  17. LOPEMIN [Concomitant]
     Indication: ENTEROCOLITIS
     Route: 048
     Dates: start: 20060529, end: 20060713
  18. AMLODIN [Concomitant]
     Indication: HYPERTENSION
     Route: 048
     Dates: start: 20060514, end: 20060517
  19. AMLODIN [Concomitant]
     Route: 048
     Dates: start: 20060613, end: 20060619
  20. REBETOL [Concomitant]
     Indication: ADENOVIRUS INFECTION
     Dosage: UNKNOWN DAILY DOSE
     Route: 048
     Dates: start: 20060601, end: 20060603
  21. PROGRAF [Suspect]
     Indication: GRAFT VERSUS HOST DISEASE
     Route: 048
     Dates: start: 20060527, end: 20060601
  22. HYCAMTIN [Concomitant]
     Indication: ACUTE LEUKAEMIA
     Dosage: UNKNOWN
     Route: 042
     Dates: start: 20060530, end: 20060531
  23. HYCAMTIN [Concomitant]
     Dosage: UNKNOWN
     Route: 042
     Dates: start: 20060620, end: 20060620
  24. HYCAMTIN [Concomitant]
     Dosage: UNKNOWN
     Route: 042
     Dates: start: 20060702, end: 20060703
  25. HYCAMTIN [Concomitant]
     Dosage: UNKNOWN
     Route: 042
     Dates: start: 20060705, end: 20060706
  26. HYCAMTIN [Concomitant]
     Dosage: UNKNOWN
     Route: 042
     Dates: start: 20060717, end: 20060717
  27. CYTARABINE [Suspect]
     Indication: ACUTE LEUKAEMIA
     Dosage: UNKNOWN DAILY DOSE
     Route: 042
     Dates: start: 20060512, end: 20060514
  28. CYTARABINE [Suspect]
     Dosage: UNKNOWN DAILY DOSE
     Route: 042
     Dates: start: 20060630, end: 20060702

REACTIONS (9)
  - BLOOD PRESSURE DECREASED [None]
  - CHRONIC GRAFT VERSUS HOST DISEASE [None]
  - CONDITION AGGRAVATED [None]
  - DISSEMINATED INTRAVASCULAR COAGULATION [None]
  - HYPERBILIRUBINAEMIA [None]
  - OXYGEN SATURATION DECREASED [None]
  - PLATELET COUNT DECREASED [None]
  - RENAL FAILURE ACUTE [None]
  - SEPSIS [None]
